FAERS Safety Report 6138578-2 (Version None)
Quarter: 2009Q1

REPORT INFORMATION
  Report Type: 
  Country: None (occurrence: None)
  Receive Date: 20090331
  Receipt Date: 20090319
  Transmission Date: 20090719
  Serious: Yes (Other)
  Sender: FDA-Public Use
  Company Number: GB-PFIZER INC-2008156752

PATIENT

DRUGS (6)
  1. CABASER [Suspect]
     Indication: PARKINSON'S DISEASE
     Dates: start: 19980901, end: 20070101
  2. MADOPAR [Concomitant]
     Dosage: UNK
     Dates: start: 19870501
  3. ROPINIROLE [Concomitant]
  4. FLUOXETINE [Concomitant]
  5. DOMPERIDONE [Concomitant]
  6. AMANTADINE [Concomitant]

REACTIONS (2)
  - HYPERSEXUALITY [None]
  - OBSESSIVE-COMPULSIVE DISORDER [None]
